FAERS Safety Report 5007266-8 (Version None)
Quarter: 2006Q2

REPORT INFORMATION
  Report Type: 
  Country: None (occurrence: None)
  Receive Date: 20060517
  Receipt Date: 20060428
  Transmission Date: 20061013
  Serious: Yes (Other)
  Sender: FDA-Public Use
  Company Number: US200605000217

PATIENT
  Age: 68 Year
  Sex: Female

DRUGS (14)
  1. FORTEO [Suspect]
     Indication: OSTEOPOROSIS
     Dates: start: 20030101
  2. FORTEO PEN (FORTEO PEN) [Concomitant]
  3. CALCIUM (CALCIUM) [Concomitant]
  4. CALCITROL (CALCIUM CARBONATE, ERGOCALCIFEROL, RETINOL) [Concomitant]
  5. PREMARIN [Concomitant]
  6. LEVOTHYROXINE SODIUM [Concomitant]
  7. NEXIUM [Concomitant]
  8. BUPROPION (BUPROPION) [Concomitant]
  9. MELATONIN (MELATONIN) [Concomitant]
  10. PEPCID [Concomitant]
  11. DOLOPHINE (METHADONE HYDROCHLORIDE) [Concomitant]
  12. ESZOPICLONE (ESZOPICLONE) [Concomitant]
  13. FERROUS SULFATE TAB [Concomitant]
  14. LAMISIL /00992601/ (TERBINAFINE) [Concomitant]

REACTIONS (3)
  - OSTEOPOROSIS [None]
  - PHARMACEUTICAL PRODUCT COMPLAINT [None]
  - SPINAL FUSION SURGERY [None]
